FAERS Safety Report 7395438-7 (Version None)
Quarter: 2011Q2

REPORT INFORMATION
  Report Type: 
  Country: None (occurrence: None)
  Receive Date: 20110405
  Receipt Date: 20110325
  Transmission Date: 20111010
  Serious: Yes (Other)
  Sender: FDA-Public Use
  Company Number: GB-TEVA-273834ISR

PATIENT
  Age: 3 Year
  Sex: Female

DRUGS (1)
  1. CLARITHROMYCIN [Suspect]
     Route: 048
     Dates: start: 20110314, end: 20110316

REACTIONS (3)
  - DRUG HYPERSENSITIVITY [None]
  - ORAL DISCOMFORT [None]
  - THROAT IRRITATION [None]
